FAERS Safety Report 21732368 (Version 1)
Quarter: 2022Q4

REPORT INFORMATION
  Report Type: Spontaneous
  Country: US (occurrence: None)
  Receive Date: 20221215
  Receipt Date: 20221215
  Transmission Date: 20230113
  Serious: No
  Sender: FDA-Public Use
  Company Number: US-Encube-000237

PATIENT
  Sex: Female

DRUGS (1)
  1. TAVABOROLE [Suspect]
     Active Substance: TAVABOROLE
     Indication: Onychomycosis
     Dates: start: 20220803

REACTIONS (1)
  - Onychomalacia [Unknown]

NARRATIVE: CASE EVENT DATE: 20221205
